FAERS Safety Report 17097840 (Version 1)
Quarter: 2019Q4

REPORT INFORMATION
  Report Type: Spontaneous
  Country: US (occurrence: US)
  Receive Date: 20191105
  Receipt Date: 20191105
  Transmission Date: 20200122
  Serious: Yes (Life-Threatening)
  Sender: FDA-Public Use
  Company Number: None

PATIENT
  Age: 58 Year
  Sex: Male
  Weight: 73.3 kg

DRUGS (16)
  1. DAUNORUBICIN [Concomitant]
     Active Substance: DAUNORUBICIN
  2. ENTRESTO [Concomitant]
     Active Substance: SACUBITRIL\VALSARTAN
  3. LETERMOVIR [Concomitant]
     Active Substance: LETERMOVIR
  4. ATIVAN [Concomitant]
     Active Substance: LORAZEPAM
  5. ACYCLOVIR. [Concomitant]
     Active Substance: ACYCLOVIR
  6. CYTARABINE. [Concomitant]
     Active Substance: CYTARABINE
  7. DEXAMETHASONE. [Concomitant]
     Active Substance: DEXAMETHASONE
  8. FAMOTIDINE. [Concomitant]
     Active Substance: FAMOTIDINE
  9. TROGARZO [Suspect]
     Active Substance: IBALIZUMAB-UIYK
     Indication: HIV INFECTION
     Route: 042
     Dates: start: 20190215, end: 20191016
  10. FOLIC ACID. [Suspect]
     Active Substance: FOLIC ACID
  11. DUONEB [Concomitant]
     Active Substance: ALBUTEROL SULFATE\IPRATROPIUM BROMIDE
  12. CARVEDILOL. [Concomitant]
     Active Substance: CARVEDILOL
  13. CYCLOSPORINE. [Concomitant]
     Active Substance: CYCLOSPORINE
  14. TROGARZO [Suspect]
     Active Substance: IBALIZUMAB-UIYK
     Indication: DRUG RESISTANCE
     Route: 042
     Dates: start: 20190215, end: 20191016
  15. VINCRISTINE [Concomitant]
     Active Substance: VINCRISTINE
  16. BIKTARVY [Concomitant]
     Active Substance: BICTEGRAVIR SODIUM\EMTRICITABINE\TENOFOVIR ALAFENAMIDE FUMARATE

REACTIONS (7)
  - Dyspnoea [None]
  - Cough [None]
  - Eye pruritus [None]
  - Haemoptysis [None]
  - Eye swelling [None]
  - Swollen tongue [None]
  - Dysphonia [None]

NARRATIVE: CASE EVENT DATE: 20191016
